FAERS Safety Report 5836784-5 (Version None)
Quarter: 2008Q3

REPORT INFORMATION
  Report Type: 
  Country: None (occurrence: None)
  Receive Date: 20080807
  Receipt Date: 20080801
  Transmission Date: 20090109
  Serious: Yes (Other)
  Sender: FDA-Public Use
  Company Number: AU-AVENTIS-200817318GDDC

PATIENT
  Age: 49 Year
  Sex: Male

DRUGS (7)
  1. LANTUS [Suspect]
     Dosage: DOSE: 50-60
     Route: 058
  2. NOVORAPID [Concomitant]
  3. METFORMIN HCL [Concomitant]
     Dates: start: 20080601
  4. EFEXOR                             /01233802/ [Concomitant]
     Dates: start: 20080601
  5. ANTIHYPERTENSIVES [Concomitant]
  6. NEXIUM [Concomitant]
  7. ASPIRIN [Concomitant]

REACTIONS (3)
  - BLOOD GLUCOSE FLUCTUATION [None]
  - HYPERHIDROSIS [None]
  - WEIGHT INCREASED [None]
